FAERS Safety Report 6667290-6 (Version None)
Quarter: 2010Q2

REPORT INFORMATION
  Report Type: 
  Country: None (occurrence: None)
  Receive Date: 20100401
  Receipt Date: 20100317
  Transmission Date: 20101027
  Serious: Yes (Other)
  Sender: FDA-Public Use
  Company Number: 10-000371

PATIENT
  Age: 25 Year
  Sex: Female
  Weight: 68 kg

DRUGS (1)
  1. DORYX [Suspect]
     Indication: ACNE
     Dosage: 150 MG, QD, ORAL
     Route: 048
     Dates: start: 20100303, end: 20100306

REACTIONS (1)
  - COLITIS ISCHAEMIC [None]
